FAERS Safety Report 8156215-2 (Version None)
Quarter: 2012Q1

REPORT INFORMATION
  Report Type: 
  Country: None (occurrence: None)
  Receive Date: 20120216
  Receipt Date: 20120125
  Transmission Date: 20120608
  Serious: Yes (Hospitalization)
  Sender: FDA-Public Use
  Company Number: 2012000019

PATIENT
  Sex: Female

DRUGS (2)
  1. INSULIN [Concomitant]
  2. ACEON [Suspect]
     Indication: HYPERTENSION
     Dosage: 10 MG, QD, ORAL
     Route: 048
     Dates: start: 20100101, end: 20111205

REACTIONS (5)
  - DRUG INEFFECTIVE [None]
  - NAUSEA [None]
  - BLOOD PRESSURE INCREASED [None]
  - CHEST PAIN [None]
  - DIZZINESS [None]
